FAERS Safety Report 20344949 (Version 1)
Quarter: 2022Q1

REPORT INFORMATION
  Report Type: Spontaneous
  Country: US (occurrence: None)
  Receive Date: 20220115
  Receipt Date: 20220115
  Transmission Date: 20220423
  Serious: No
  Sender: FDA-Public Use
  Company Number: None

PATIENT
  Age: 79 Year
  Sex: Female

DRUGS (3)
  1. BAMLANIVIMAB [Suspect]
     Active Substance: BAMLANIVIMAB
     Indication: COVID-19
     Dosage: OTHER FREQUENCY : ONE-TIME DOSE;?
     Route: 042
  2. ETESEVIMAB [Suspect]
     Active Substance: ETESEVIMAB
     Indication: COVID-19
     Dosage: OTHER FREQUENCY : ONE-TIME DOSE;?
     Route: 042
  3. Sodium Chloride 0.9% 100ml [Concomitant]
     Dates: start: 20220114, end: 20220114

REACTIONS (3)
  - Chest discomfort [None]
  - Muscle tightness [None]
  - Infusion related reaction [None]

NARRATIVE: CASE EVENT DATE: 20220114
